FAERS Safety Report 5307419-5 (Version None)
Quarter: 2007Q1

REPORT INFORMATION
  Report Type: 
  Country: None (occurrence: None)
  Receive Date: 20070201
  Receipt Date: 20061209
  Transmission Date: 20070707
  Serious: No
  Sender: FDA-Public Use
  Company Number: 2006PV026615

PATIENT
  Age: 53 Year
  Sex: Female
  Weight: 76.2043 kg

DRUGS (2)
  1. BYETTA [Suspect]
     Indication: GLUCOSE TOLERANCE IMPAIRED
     Dosage: 5 MCG BID SC
     Route: 058
     Dates: start: 20061201
  2. GLUCOPHAGE [Concomitant]

REACTIONS (3)
  - ABDOMINAL DISTENSION [None]
  - CONSTIPATION [None]
  - WEIGHT DECREASED [None]
